FAERS Safety Report 6446743-X (Version None)
Quarter: 2009Q4

REPORT INFORMATION
  Report Type: 
  Country: None (occurrence: None)
  Receive Date: 20091119
  Receipt Date: 20091109
  Transmission Date: 20100525
  Serious: No
  Sender: FDA-Public Use
  Company Number: US-JNJFOC-20091104335

PATIENT
  Sex: Female
  Weight: 60.78 kg

DRUGS (10)
  1. DURAGESIC-100 [Suspect]
     Indication: NEURALGIA
     Route: 062
  2. DURAGESIC-100 [Concomitant]
     Route: 062
  3. TOPAMAX [Concomitant]
     Indication: NEURALGIA
     Route: 048
  4. TRAMADOL HCL [Concomitant]
     Indication: PAIN
     Route: 048
  5. DIOVAN [Concomitant]
     Indication: HYPERTENSION
     Route: 048
  6. NEXIUM [Concomitant]
     Indication: GASTRIC DISORDER
     Route: 048
  7. PERCOCET [Concomitant]
     Indication: BREAKTHROUGH PAIN
     Dosage: AS NEEDED
     Route: 048
  8. PENTASA [Concomitant]
     Dosage: AS NEEDED
     Route: 048
  9. HUMULIN R [Concomitant]
     Indication: DIABETES MELLITUS
     Route: 058
  10. HUMULIN INSULIN N [Concomitant]
     Indication: DIABETES MELLITUS
     Route: 058

REACTIONS (2)
  - DRUG INEFFECTIVE [None]
  - INAPPROPRIATE SCHEDULE OF DRUG ADMINISTRATION [None]
